FAERS Safety Report 9044042 (Version 1)
Quarter: 2013Q1

REPORT INFORMATION
  Report Type: Spontaneous
  Country: GB (occurrence: GB)
  Receive Date: 20130130
  Receipt Date: 20130130
  Transmission Date: 20140127
  Serious: Yes (Other)
  Sender: FDA-Public Use
  Company Number: GB-JNJFOC-20130113269

PATIENT
  Sex: Female

DRUGS (4)
  1. DIPHENHYDRAMINE HYDROCHLORIDE [Suspect]
     Indication: NASOPHARYNGITIS
     Route: 065
  2. DIPHENHYDRAMINE HYDROCHLORIDE [Suspect]
     Indication: COUGH
     Route: 065
  3. MENTHOL [Suspect]
     Indication: COUGH
     Route: 065
  4. MENTHOL [Suspect]
     Indication: NASOPHARYNGITIS
     Route: 065

REACTIONS (3)
  - Diabetes mellitus [Unknown]
  - Therapeutic response unexpected [Unknown]
  - Off label use [Unknown]
